FAERS Safety Report 6941082-2 (Version None)
Quarter: 2010Q3

REPORT INFORMATION
  Report Type: 
  Country: None (occurrence: None)
  Receive Date: 20100824
  Receipt Date: 20100824
  Transmission Date: 20110219
  Serious: Yes (Other)
  Sender: FDA-Public Use
  Company Number: None

PATIENT
  Age: 65 Year
  Sex: Male
  Weight: 74.8435 kg

DRUGS (1)
  1. CHANTIX [Suspect]
     Dosage: 1 TABLET 2 PER DAY PO
     Route: 048
     Dates: start: 20100810, end: 20100820

REACTIONS (3)
  - BURNING SENSATION [None]
  - NEURALGIA [None]
  - PARAESTHESIA [None]
